FAERS Safety Report 23770619 (Version 1)
Quarter: 2024Q2

REPORT INFORMATION
  Report Type: Spontaneous
  Country: KR (occurrence: KR)
  Receive Date: 20240422
  Receipt Date: 20240422
  Transmission Date: 20240716
  Serious: No
  Sender: FDA-Public Use
  Company Number: KR-WT-2024-APC-036514

PATIENT

DRUGS (1)
  1. AVODART [Suspect]
     Active Substance: DUTASTERIDE
     Route: 050

REACTIONS (3)
  - Product preparation issue [Unknown]
  - Product use issue [Unknown]
  - Wrong technique in product usage process [Unknown]
